FAERS Safety Report 7994223-2 (Version None)
Quarter: 2011Q4

REPORT INFORMATION
  Report Type: 
  Country: None (occurrence: None)
  Receive Date: 20111220
  Receipt Date: 20111208
  Transmission Date: 20120403
  Serious: Yes (Hospitalization)
  Sender: FDA-Public Use
  Company Number: FR-JNJFOC-20111204623

PATIENT
  Age: 48 Year
  Sex: Male

DRUGS (5)
  1. TRAMADOL HCL [Concomitant]
     Indication: PAIN
     Dosage: 150-900 MG PRN
  2. TRILEPTAL [Concomitant]
     Dosage: WITH PROGRESSIVE INCREASE OF DOSE UNTIL 1 GRAM TWICE A DAY
  3. MOBIC [Concomitant]
  4. REMICADE [Suspect]
     Indication: ANKYLOSING SPONDYLITIS
     Route: 042
     Dates: start: 20050909, end: 20110906
  5. PANTOPRAZOLE SODIUM [Suspect]
     Indication: PRODUCT USED FOR UNKNOWN INDICATION
     Route: 048

REACTIONS (6)
  - INTRACRANIAL ANEURYSM [None]
  - AGITATION [None]
  - APHASIA [None]
  - CONFUSIONAL STATE [None]
  - EPILEPSY [None]
  - HEADACHE [None]
